FAERS Safety Report 6911803-3 (Version None)
Quarter: 2010Q3

REPORT INFORMATION
  Report Type: 
  Country: None (occurrence: None)
  Receive Date: 20100806
  Receipt Date: 20040528
  Transmission Date: 20110219
  Serious: No
  Sender: FDA-Public Use
  Company Number: US-PFIZER INC-2007058510

PATIENT

DRUGS (3)
  1. DETROL LA [Suspect]
  2. CIPROFLOXACIN [Concomitant]
  3. ALL OTHER THERAPEUTIC PRODUCTS [Concomitant]

REACTIONS (2)
  - HYPERSENSITIVITY [None]
  - SENSORY DISTURBANCE [None]
